FAERS Safety Report 25588738 (Version 2)
Quarter: 2025Q3

REPORT INFORMATION
  Report Type: Spontaneous
  Country: US (occurrence: US)
  Receive Date: 20250722
  Receipt Date: 20250806
  Transmission Date: 20251020
  Serious: No
  Sender: Haleon PLC
  Company Number: US-HALEON-2253110

PATIENT

DRUGS (2)
  1. TUMS CHEWY BITES [Suspect]
     Active Substance: CALCIUM CARBONATE
     Indication: Gastrooesophageal reflux disease
  2. TUMS CHEWY BITES [Suspect]
     Active Substance: CALCIUM CARBONATE
     Indication: Abdominal discomfort

REACTIONS (1)
  - No adverse event [Unknown]
